FAERS Safety Report 7584728-0 (Version None)
Quarter: 2011Q2

REPORT INFORMATION
  Report Type: 
  Country: None (occurrence: None)
  Receive Date: 20110630
  Receipt Date: 20110617
  Transmission Date: 20111010
  Serious: Yes (Hospitalization, Other)
  Sender: FDA-Public Use
  Company Number: PHHY2011BR54169

PATIENT
  Sex: Female

DRUGS (4)
  1. LOSARTAN POTASSIUM [Concomitant]
  2. CAPTOPRIL [Concomitant]
  3. ZESTRIL [Concomitant]
  4. DIOVAN [Suspect]

REACTIONS (1)
  - HYPERTENSION [None]
